FAERS Safety Report 10248462 (Version 3)
Quarter: 2014Q3

REPORT INFORMATION
  Report Type: Spontaneous
  Country: US (occurrence: US)
  Receive Date: 20140620
  Receipt Date: 20140825
  Transmission Date: 20150326
  Serious: Yes (Hospitalization, Other)
  Sender: FDA-Public Use
  Company Number: US-ROCHE-1421729

PATIENT
  Age: 27 Year
  Sex: Female
  Weight: 72.2 kg

DRUGS (5)
  1. HEPARIN [Concomitant]
     Active Substance: HEPARIN SODIUM
  2. CEFAZOLIN [Concomitant]
     Active Substance: CEFAZOLIN
  3. ACTIVASE [Suspect]
     Active Substance: ALTEPLASE
     Indication: DEEP VEIN THROMBOSIS
     Route: 013
     Dates: start: 20140610, end: 20140611
  4. ACTIVASE [Suspect]
     Active Substance: ALTEPLASE
     Dosage: 1 MG/HR
     Route: 013
     Dates: start: 20140610, end: 20140611
  5. ACTIVASE [Suspect]
     Active Substance: ALTEPLASE
     Indication: THORACIC OUTLET SYNDROME
     Route: 042

REACTIONS (4)
  - Blood creatinine increased [Unknown]
  - Product quality issue [Unknown]
  - Renal failure acute [Not Recovered/Not Resolved]
  - Renal failure acute [Not Recovered/Not Resolved]

NARRATIVE: CASE EVENT DATE: 20140611
